FAERS Safety Report 5150777-5 (Version None)
Quarter: 2006Q4

REPORT INFORMATION
  Report Type: 
  Country: None (occurrence: None)
  Receive Date: 20061108
  Receipt Date: 20061025
  Transmission Date: 20070319
  Serious: Yes (Other)
  Sender: FDA-Public Use
  Company Number: 2006JP004402

PATIENT
  Age: 49 Year
  Sex: Female

DRUGS (10)
  1. PROGRAF [Suspect]
     Indication: HEART TRANSPLANT
     Dosage: SEE IMAGE
  2. CYCLOSPORINE [Concomitant]
  3. MYCOPHENOLATE MOFETIL [Concomitant]
  4. PREDNISONE TAB [Concomitant]
  5. TRIMETOPRIM + SULFAMETOXAZOL (SULFAMETHOXAZOLE, TRIMETHOPRIM) [Concomitant]
  6. GANCICLOVIR (GANCICLOVIR) INJECTION [Concomitant]
  7. METHYLPREDNISOLONE [Concomitant]
  8. PREDNISONE TAB [Concomitant]
  9. ITRACONAZOLE [Concomitant]
  10. AMPHOTERICIN INJECTION) [Concomitant]

REACTIONS (5)
  - BRONCHOPULMONARY ASPERGILLOSIS [None]
  - CYTOMEGALOVIRUS GASTROINTESTINAL INFECTION [None]
  - DRUG INTERACTION [None]
  - DRUG LEVEL INCREASED [None]
  - KAPOSI'S SARCOMA [None]
